FAERS Safety Report 18383924 (Version 1)
Quarter: 2020Q4

REPORT INFORMATION
  Report Type: Spontaneous
  Country: US (occurrence: US)
  Receive Date: 20201014
  Receipt Date: 20201014
  Transmission Date: 20210114
  Serious: No
  Sender: FDA-Public Use
  Company Number: US-SA-2020SA282964

PATIENT

DRUGS (1)
  1. CABLIVI [Suspect]
     Active Substance: CAPLACIZUMAB-YHDP
     Indication: THROMBOTIC MICROANGIOPATHY
     Dosage: 11 MG, QD
     Route: 058
     Dates: start: 20200927

REACTIONS (5)
  - Swelling face [Unknown]
  - Blood chloride abnormal [Unknown]
  - Aspartate aminotransferase abnormal [Unknown]
  - Fatigue [Recovering/Resolving]
  - Mean cell volume abnormal [Unknown]

NARRATIVE: CASE EVENT DATE: 20201002
